FAERS Safety Report 9091302 (Version 1)
Quarter: 2013Q1

REPORT INFORMATION
  Report Type: Spontaneous
  Country: US (occurrence: US)
  Receive Date: 20130201
  Receipt Date: 20130201
  Transmission Date: 20140127
  Serious: No
  Sender: FDA-Public Use
  Company Number: US-ABBOTT-12P-163-1028097-00

PATIENT
  Sex: Female
  Weight: 56.75 kg

DRUGS (7)
  1. HUMIRA [Suspect]
     Indication: ANKYLOSING SPONDYLITIS
     Route: 058
     Dates: start: 201006, end: 201211
  2. HUMIRA [Suspect]
     Dates: start: 201211
  3. METHOTREXATE [Concomitant]
     Indication: ANKYLOSING SPONDYLITIS
     Dosage: 5 TABLETS WEEKLY
  4. CELEBREX [Concomitant]
     Indication: ANKYLOSING SPONDYLITIS
  5. FOLIC ACID [Concomitant]
     Indication: VITAMIN SUPPLEMENTATION
  6. RESTASIS [Concomitant]
     Indication: DRY EYE
     Dosage: EYE DROPS
  7. UNKNOWN SLEEPING PILL [Concomitant]
     Indication: INSOMNIA

REACTIONS (3)
  - Drug ineffective [Recovered/Resolved]
  - Injection site bruising [Recovered/Resolved]
  - Injection site pain [Recovered/Resolved]
